FAERS Safety Report 16845341 (Version 1)
Quarter: 2019Q3

REPORT INFORMATION
  Report Type: Spontaneous
  Country: NL (occurrence: NL)
  Receive Date: 20190924
  Receipt Date: 20190924
  Transmission Date: 20191005
  Serious: Yes (Life-Threatening)
  Sender: FDA-Public Use
  Company Number: NL-SA-2019SA257884

PATIENT
  Sex: Male
  Weight: 105 kg

DRUGS (4)
  1. DIPHANTOINE Z [Concomitant]
     Indication: ATYPICAL BENIGN PARTIAL EPILEPSY
     Dosage: 3X 92 MG / DAY
     Route: 065
     Dates: start: 20080101
  2. RIVOTRIL [Concomitant]
     Active Substance: CLONAZEPAM
     Indication: RESTLESS LEGS SYNDROME
     Dosage: 1 X DAY
     Route: 065
  3. TOUJEO [Suspect]
     Active Substance: INSULIN GLARGINE
     Indication: TYPE 2 DIABETES MELLITUS
     Dosage: UNK, QD
     Route: 065
     Dates: start: 20190903, end: 20190916
  4. DEPAKINE CHRONO [Concomitant]
     Active Substance: VALPROATE SODIUM
     Indication: ATYPICAL BENIGN PARTIAL EPILEPSY
     Dosage: 1X 3X 500 MG /DAY
     Route: 065
     Dates: start: 20060101

REACTIONS (8)
  - Nausea [Unknown]
  - Tinnitus [Unknown]
  - Confusional state [Unknown]
  - Depressed level of consciousness [Unknown]
  - Blood glucose increased [Unknown]
  - Visual impairment [Unknown]
  - Dyspnoea [Unknown]
  - Product storage error [Unknown]
